FAERS Safety Report 11663018 (Version 1)
Quarter: 2015Q4

REPORT INFORMATION
  Report Type: Spontaneous
  Country: US (occurrence: US)
  Receive Date: 20151027
  Receipt Date: 20151027
  Transmission Date: 20160304
  Serious: No
  Sender: FDA-Public Use
  Company Number: US-MEDA-2010060033

PATIENT
  Age: 55 Year
  Sex: Female

DRUGS (8)
  1. ASPIRIN. [Concomitant]
     Active Substance: ASPIRIN
  2. FENTANYL. [Concomitant]
     Active Substance: FENTANYL
     Indication: CANCER PAIN
     Dosage: 100 MCG/HR
     Route: 062
  3. FISH OIL [Concomitant]
     Active Substance: FISH OIL
  4. ONSOLIS [Suspect]
     Active Substance: FENTANYL CITRATE
     Indication: CANCER PAIN
     Route: 002
     Dates: start: 20100507, end: 2010
  5. FENTORA [Concomitant]
     Active Substance: FENTANYL CITRATE
     Indication: CANCER PAIN
     Route: 002
  6. MULTIVITAMIN [Concomitant]
     Active Substance: VITAMINS
  7. MORPHINE [Concomitant]
     Active Substance: MORPHINE
  8. KADIAN [Concomitant]
     Active Substance: MORPHINE SULFATE

REACTIONS (1)
  - Drug ineffective [Not Recovered/Not Resolved]

NARRATIVE: CASE EVENT DATE: 201005
